FAERS Safety Report 23951627 (Version 1)
Quarter: 2024Q2

REPORT INFORMATION
  Report Type: Spontaneous
  Country: US (occurrence: None)
  Receive Date: 20240607
  Receipt Date: 20240607
  Transmission Date: 20240716
  Serious: Yes (Hospitalization)
  Sender: FDA-Public Use
  Company Number: None

PATIENT
  Age: 87 Year
  Sex: Male

DRUGS (1)
  1. HYDRALAZINE HCL [Suspect]
     Active Substance: HYDRALAZINE HYDROCHLORIDE
     Indication: Hypertension
     Dates: start: 20230825, end: 20240524

REACTIONS (13)
  - Hypotension [None]
  - Gait disturbance [None]
  - Fall [None]
  - Tremor [None]
  - Cerebrovascular accident [None]
  - Hypophagia [None]
  - Dyspnoea exertional [None]
  - Confusional state [None]
  - Pseudodementia [None]
  - Dyspnoea [None]
  - Anxiety [None]
  - Cognitive disorder [None]
  - Panic attack [None]

NARRATIVE: CASE EVENT DATE: 20240525
